FAERS Safety Report 21988763 (Version 1)
Quarter: 2023Q1

REPORT INFORMATION
  Report Type: Report from Study
  Country: US (occurrence: US)
  Receive Date: 20230214
  Receipt Date: 20230214
  Transmission Date: 20230418
  Serious: Yes (Hospitalization, Other)
  Sender: FDA-Public Use
  Company Number: US-ABBVIE-4306743

PATIENT
  Age: 47 Year
  Sex: Male
  Weight: 107.95 kg

DRUGS (1)
  1. HUMIRA [Suspect]
     Active Substance: ADALIMUMAB
     Indication: Hidradenitis
     Route: 058
     Dates: start: 20210705, end: 20230127

REACTIONS (5)
  - Joint swelling [Recovering/Resolving]
  - Chest pain [Recovering/Resolving]
  - Staphylococcal infection [Recovering/Resolving]
  - Arthralgia [Recovering/Resolving]
  - Bone cancer [Not Recovered/Not Resolved]

NARRATIVE: CASE EVENT DATE: 20230101
